FAERS Safety Report 7999434-8 (Version None)
Quarter: 2011Q4

REPORT INFORMATION
  Report Type: 
  Country: None (occurrence: None)
  Receive Date: 20111221
  Receipt Date: 20111219
  Transmission Date: 20120403
  Serious: Yes (Hospitalization)
  Sender: FDA-Public Use
  Company Number: JP-PFIZER INC-2011287190

PATIENT
  Age: 25 Year
  Sex: Female

DRUGS (1)
  1. MEDROXYPROGESTERONE ACETATE [Suspect]
     Indication: OVARIAN FAILURE
     Dosage: 5 MG, 2X/DAY
     Route: 048
     Dates: start: 20111108

REACTIONS (1)
  - DRUG HYPERSENSITIVITY [None]
